FAERS Safety Report 13695833 (Version 1)
Quarter: 2017Q2

REPORT INFORMATION
  Report Type: Report from Study
  Country: None (occurrence: CH)
  Receive Date: 20170627
  Receipt Date: 20170627
  Transmission Date: 20170830
  Serious: Yes (Hospitalization)
  Sender: FDA-Public Use
  Company Number: CH-ABBVIE-17K-151-2001977-00

PATIENT
  Sex: Female

DRUGS (3)
  1. DUODOPA [Suspect]
     Active Substance: CARBIDOPA\LEVODOPA
     Dosage: MORNING DOSE 6.0ML, CR  DAY 2.6ML/H, CR  NIGHT 1.0ML/H, EXTRA DOSE 0ML
     Route: 050
     Dates: start: 20170620
  2. DUODOPA [Suspect]
     Active Substance: CARBIDOPA\LEVODOPA
     Indication: PRODUCT USED FOR UNKNOWN INDICATION
     Dosage: 1 CASSETTE PER 24H, MD 6.0ML, CR DAY 2.6ML/H, CR NIGHT 1.0ML/H, EXTRA DOSE 2.0ML
     Route: 050
     Dates: start: 20150407
  3. DUODOPA [Suspect]
     Active Substance: CARBIDOPA\LEVODOPA
     Dosage: MORNING DOSE 0ML, CR DAY 2.6ML/H, CR  NIGHT 1.0ML/H, EXTRA DOSE 4.0ML
     Route: 050
     Dates: end: 20170620

REACTIONS (1)
  - Extra dose administered [Unknown]
